FAERS Safety Report 6836577-6 (Version None)
Quarter: 2010Q3

REPORT INFORMATION
  Report Type: 
  Country: None (occurrence: None)
  Receive Date: 20100713
  Receipt Date: 20100701
  Transmission Date: 20110219
  Serious: Yes (Other)
  Sender: FDA-Public Use
  Company Number: US-WYE-H15935110

PATIENT
  Sex: Female
  Weight: 64.47 kg

DRUGS (1)
  1. PROTONIX [Suspect]
     Route: 048
     Dates: start: 20000101, end: 20091201

REACTIONS (1)
  - CONVULSION [None]
